FAERS Safety Report 25284486 (Version 2)
Quarter: 2025Q3

REPORT INFORMATION
  Report Type: Spontaneous
  Country: CA (occurrence: CA)
  Receive Date: 20250508
  Receipt Date: 20250715
  Transmission Date: 20251021
  Serious: Yes (Other)
  Sender: TAKEDA
  Company Number: CA-TAKEDA-2025TUS021691

PATIENT
  Age: 84 Year
  Sex: Female
  Weight: 55 kg

DRUGS (14)
  1. GAMMAGARD LIQUID [Suspect]
     Active Substance: HUMAN IMMUNOGLOBULIN G
     Indication: Hypogammaglobulinaemia
  2. REMDESIVIR [Concomitant]
     Active Substance: REMDESIVIR
  3. UNSPECIFIED INGREDIENT [Concomitant]
     Active Substance: UNSPECIFIED INGREDIENT
  4. ENOXAPARIN [Concomitant]
     Active Substance: ENOXAPARIN
  5. EZETIMIBE [Concomitant]
     Active Substance: EZETIMIBE
  6. PREGABALIN [Concomitant]
     Active Substance: PREGABALIN
  7. CLOPIDOGREL [Concomitant]
     Active Substance: CLOPIDOGREL BISULFATE
  8. VALACYCLOVIR [Concomitant]
     Active Substance: VALACYCLOVIR HYDROCHLORIDE
  9. METOPROLOL [Concomitant]
     Active Substance: METOPROLOL
  10. COTRIMOXAZOLE [Concomitant]
     Active Substance: SULFAMETHOXAZOLE\TRIMETHOPRIM
  11. ASPIRIN [Concomitant]
     Active Substance: ASPIRIN
  12. TYLENOL [Concomitant]
     Active Substance: ACETAMINOPHEN
  13. ATORVASTATIN [Concomitant]
     Active Substance: ATORVASTATIN
  14. IRON SUCROSE [Concomitant]
     Active Substance: IRON SUCROSE

REACTIONS (5)
  - COVID-19 pneumonia [Unknown]
  - Infusion related reaction [Unknown]
  - Lung opacity [Unknown]
  - Incorrect dose administered [Unknown]
  - Infusion related hypersensitivity reaction [Recovered/Resolved]

NARRATIVE: CASE EVENT DATE: 20250205
